FAERS Safety Report 25674859 (Version 1)
Quarter: 2025Q3

REPORT INFORMATION
  Report Type: Spontaneous
  Country: EU (occurrence: EU)
  Receive Date: 20250813
  Receipt Date: 20250813
  Transmission Date: 20251021
  Serious: Yes (Hospitalization, Other)
  Sender: AUROBINDO
  Company Number: EU-UCBSA-2025046070

PATIENT
  Age: 61 Year
  Sex: Female

DRUGS (1)
  1. LEVETIRACETAM [Suspect]
     Active Substance: LEVETIRACETAM
     Indication: Epilepsy
     Dosage: UNK, ONCE A DAY (UNK, 700 MILLIGRAM IN MORNING AND 1000 MILLIGRAM IN EVENING)
     Route: 065
     Dates: start: 2018

REACTIONS (10)
  - Seizure [Unknown]
  - Amnesia [Unknown]
  - Generalised anxiety disorder [Unknown]
  - Osteoporosis [Unknown]
  - Weight decreased [Unknown]
  - Oropharyngeal pain [Unknown]
  - Tremor [Unknown]
  - Magnesium deficiency [Unknown]
  - Blood electrolytes decreased [Unknown]
  - Product use issue [Unknown]

NARRATIVE: CASE EVENT DATE: 20240201
